FAERS Safety Report 5155260-9 (Version None)
Quarter: 2006Q4

REPORT INFORMATION
  Report Type: 
  Country: None (occurrence: None)
  Receive Date: 20061121
  Receipt Date: 20061115
  Transmission Date: 20070319
  Serious: Yes (Disabling)
  Sender: FDA-Public Use
  Company Number: FR-MERCK-0611FRA00044

PATIENT
  Age: 39 Year
  Sex: Female

DRUGS (5)
  1. COZAAR [Suspect]
     Indication: HYPERTENSION
     Route: 048
     Dates: start: 20010101, end: 20030101
  2. COZAAR [Suspect]
     Route: 048
     Dates: start: 20030101, end: 20061026
  3. PERINDOPRIL ERBUMINE [Concomitant]
     Indication: HYPERTENSION
     Route: 048
     Dates: start: 20020101
  4. LEVONORGESTREL [Concomitant]
     Indication: CONTRACEPTION
     Route: 048
  5. VITAMIN E ACETATE DL-FORM [Concomitant]
     Route: 048

REACTIONS (4)
  - FALL [None]
  - HYPOTENSION [None]
  - JOINT SPRAIN [None]
  - MYALGIA [None]
